FAERS Safety Report 12673536 (Version 1)
Quarter: 2016Q3

REPORT INFORMATION
  Report Type: Spontaneous
  Country: CA (occurrence: CA)
  Receive Date: 20160822
  Receipt Date: 20160822
  Transmission Date: 20161109
  Serious: Yes (Hospitalization)
  Sender: FDA-Public Use
  Company Number: PHHY2016CA113565

PATIENT
  Age: 57 Year
  Sex: Male

DRUGS (5)
  1. AMIKACIN [Interacting]
     Active Substance: AMIKACIN
     Indication: MYCOBACTERIUM ABSCESSUS INFECTION
     Dosage: 900 MG, Q2H
     Route: 042
  2. IMIPENEM+CILASTATIN SODIUM [Interacting]
     Active Substance: CILASTATIN SODIUM\IMIPENEM
     Indication: MYCOBACTERIUM ABSCESSUS INFECTION
     Dosage: 500 MG, Q6H
     Route: 042
  3. WARFARIN [Interacting]
     Active Substance: WARFARIN
     Indication: ANTICOAGULANT THERAPY
     Route: 065
  4. MEROPENEM. [Interacting]
     Active Substance: MEROPENEM
     Indication: CONDITION AGGRAVATED
     Dosage: 1 G, Q8H
     Route: 042
  5. CLARITHROMYCIN. [Suspect]
     Active Substance: CLARITHROMYCIN
     Indication: MYCOBACTERIUM ABSCESSUS INFECTION
     Dosage: 500 MG, BID
     Route: 048
     Dates: start: 20140717

REACTIONS (2)
  - Gastrointestinal haemorrhage [Recovering/Resolving]
  - Drug interaction [Unknown]

NARRATIVE: CASE EVENT DATE: 20140727
